FAERS Safety Report 6368596-0 (Version None)
Quarter: 2009Q3

REPORT INFORMATION
  Report Type: 
  Country: None (occurrence: None)
  Receive Date: 20090916
  Receipt Date: 20090908
  Transmission Date: 20100115
  Serious: Yes (Other)
  Sender: FDA-Public Use
  Company Number: DSA_33758_2009

PATIENT
  Sex: Male
  Weight: 68.9467 kg

DRUGS (14)
  1. XENAZINE [Suspect]
     Indication: HUNTINGTON'S CHOREA
     Dosage: (12.5 MG BID ORAL), (12.5 MG QD ORAL)
     Route: 048
     Dates: start: 20081229, end: 20090101
  2. XENAZINE [Suspect]
     Indication: HUNTINGTON'S CHOREA
     Dosage: (12.5 MG BID ORAL), (12.5 MG QD ORAL)
     Route: 048
     Dates: start: 20090101
  3. ATIVAN [Concomitant]
  4. ARICEPT [Concomitant]
  5. CENTRUM /00554501/ [Concomitant]
  6. COENZYME Q10 /00517201/ [Concomitant]
  7. MELATONIN [Concomitant]
  8. RISPERDAL [Concomitant]
  9. SENNA-MINT WAF [Concomitant]
  10. TYLENOL (CAPLET) [Concomitant]
  11. VITAMIN D [Concomitant]
  12. OXYCODONE HCL [Concomitant]
  13. ZYPREXA [Concomitant]
  14. HALDOL [Concomitant]

REACTIONS (5)
  - ABNORMAL BEHAVIOUR [None]
  - AGGRESSION [None]
  - CHOREA [None]
  - CONDITION AGGRAVATED [None]
  - INJURY [None]
